FAERS Safety Report 14232736 (Version 1)
Quarter: 2017Q4

REPORT INFORMATION
  Report Type: Spontaneous
  Country: US (occurrence: None)
  Receive Date: 20171128
  Receipt Date: 20171128
  Transmission Date: 20180321
  Serious: No
  Sender: FDA-Public Use
  Company Number: None

PATIENT
  Age: 67 Year
  Sex: Male

DRUGS (1)
  1. NAFACILLIN 2 GRAMS BAXTER [Suspect]
     Active Substance: NAFCILLIN\NAFCILLIN SODIUM
     Indication: INFECTION
     Route: 042
     Dates: start: 20171117

REACTIONS (2)
  - Therapy cessation [None]
  - Rash generalised [None]

NARRATIVE: CASE EVENT DATE: 20171126
